FAERS Safety Report 20906067 (Version 1)
Quarter: 2022Q2

REPORT INFORMATION
  Report Type: Spontaneous
  Country: US (occurrence: US)
  Receive Date: 20220602
  Receipt Date: 20220602
  Transmission Date: 20220721
  Serious: No
  Sender: FDA-Public Use
  Company Number: US-COLLEGIUM PHARMACEUTICAL, INC.-2022CGM00134

PATIENT
  Sex: Female

DRUGS (4)
  1. XTAMPZA ER [Suspect]
     Active Substance: OXYCODONE
     Indication: Pain
     Dosage: 13.5 MG, 2X/DAY
     Route: 048
     Dates: start: 2021, end: 202202
  2. XTAMPZA ER [Suspect]
     Active Substance: OXYCODONE
     Indication: Nerve injury
     Dosage: 13.5 MG, 2X/DAY
     Route: 048
     Dates: start: 202202
  3. ADVIL [Concomitant]
     Active Substance: IBUPROFEN
  4. INSULIN NOS [Concomitant]
     Active Substance: INSULIN NOS

REACTIONS (5)
  - Gait disturbance [Not Recovered/Not Resolved]
  - Performance status decreased [Not Recovered/Not Resolved]
  - Urine analysis abnormal [Not Recovered/Not Resolved]
  - Suspected product tampering [Not Recovered/Not Resolved]
  - Drug dependence [Not Recovered/Not Resolved]

NARRATIVE: CASE EVENT DATE: 20210101
